FAERS Safety Report 9906640 (Version 1)
Quarter: 2014Q1

REPORT INFORMATION
  Report Type: Spontaneous
  Country: IE (occurrence: IE)
  Receive Date: 20140218
  Receipt Date: 20140218
  Transmission Date: 20141002
  Serious: Yes (Other)
  Sender: FDA-Public Use
  Company Number: US-ASTRAZENECA-2014SE10732

PATIENT
  Age: 42 Day
  Sex: Female

DRUGS (1)
  1. SYNAGIS [Suspect]
     Route: 030
     Dates: start: 20140109

REACTIONS (3)
  - Cyanosis [Unknown]
  - Pallor [Unknown]
  - Somnolence [Unknown]
